FAERS Safety Report 4721279-2 (Version None)
Quarter: 2005Q3

REPORT INFORMATION
  Report Type: 
  Country: None (occurrence: None)
  Receive Date: 20050721
  Receipt Date: 20030523
  Transmission Date: 20060218
  Serious: No
  Sender: FDA-Public Use
  Company Number: US-BRISTOL-MYERS SQUIBB COMPANY-12284063

PATIENT
  Age: 90 Year
  Sex: Female
  Weight: 54 kg

DRUGS (1)
  1. COUMADIN [Suspect]
     Indication: ATRIAL FIBRILLATION
     Dosage: CURRENTLY TAKING 5 MG DAILY
     Route: 048

REACTIONS (1)
  - ALOPECIA [None]
